FAERS Safety Report 12307820 (Version 1)
Quarter: 2016Q2

REPORT INFORMATION
  Report Type: Spontaneous
  Country: US (occurrence: US)
  Receive Date: 20160426
  Receipt Date: 20160426
  Transmission Date: 20160815
  Serious: No
  Sender: FDA-Public Use
  Company Number: US-ALKERMES INC.-ALK-2015-001626

PATIENT

DRUGS (3)
  1. ZOLOFT [Concomitant]
     Active Substance: SERTRALINE HYDROCHLORIDE
     Indication: DEPRESSION
     Dosage: 25 UNK, UNK
     Dates: start: 201510, end: 20151024
  2. ZOLOFT [Concomitant]
     Active Substance: SERTRALINE HYDROCHLORIDE
     Dosage: 50 MG, UNK
     Dates: start: 20151024
  3. VIVITROL [Suspect]
     Active Substance: NALTREXONE
     Indication: DRUG DEPENDENCE
     Dosage: 380 MG, QMO
     Route: 030
     Dates: start: 20151024

REACTIONS (6)
  - Euphoric mood [Unknown]
  - Drug dose omission [Recovered/Resolved]
  - Alcohol use [Unknown]
  - Drug dependence [Unknown]
  - Drug abuse [Unknown]
  - Dependence [Recovered/Resolved]

NARRATIVE: CASE EVENT DATE: 2015
